FAERS Safety Report 20650079 (Version 1)
Quarter: 2022Q1

REPORT INFORMATION
  Report Type: Spontaneous
  Country: IN (occurrence: IN)
  Receive Date: 20220329
  Receipt Date: 20220329
  Transmission Date: 20220423
  Serious: Yes (Other)
  Sender: FDA-Public Use
  Company Number: IN-CMP PHARMA-2022CMP00006

PATIENT
  Age: 65 Year
  Sex: Male

DRUGS (1)
  1. TRIAMCINOLONE [Suspect]
     Active Substance: TRIAMCINOLONE
     Indication: Lens extraction
     Dosage: 4 MG/0.2 ML, ONCE
     Route: 057

REACTIONS (1)
  - Chorioretinopathy [Recovered/Resolved]
